FAERS Safety Report 25667603 (Version 2)
Quarter: 2025Q3

REPORT INFORMATION
  Report Type: Report from Study
  Country: US (occurrence: US)
  Receive Date: 20250811
  Receipt Date: 20250912
  Transmission Date: 20251020
  Serious: Yes (Other)
  Sender: UCB
  Company Number: US-UCBSA-2025049049

PATIENT
  Age: 46 Year
  Sex: Male

DRUGS (1)
  1. BIMEKIZUMAB [Suspect]
     Active Substance: BIMEKIZUMAB
     Indication: Psoriasis
     Dosage: 320 MILLIGRAM, EV 4 WEEKS
     Route: 058
     Dates: start: 20250730

REACTIONS (3)
  - COVID-19 [Not Recovered/Not Resolved]
  - Joint injury [Not Recovered/Not Resolved]
  - Os trigonum syndrome [Not Recovered/Not Resolved]

NARRATIVE: CASE EVENT DATE: 20250803
